FAERS Safety Report 14461039 (Version 5)
Quarter: 2018Q2

REPORT INFORMATION
  Report Type: Spontaneous
  Country: TR (occurrence: TR)
  Receive Date: 20180130
  Receipt Date: 20180419
  Transmission Date: 20180711
  Serious: No
  Sender: FDA-Public Use
  Company Number: TR-BIOGEN-2018BI00513463

PATIENT

DRUGS (1)
  1. TECFIDERA [Suspect]
     Active Substance: DIMETHYL FUMARATE
     Indication: MULTIPLE SCLEROSIS
     Route: 048
     Dates: start: 20171116, end: 20180117

REACTIONS (1)
  - Nuclear magnetic resonance imaging abnormal [Unknown]

NARRATIVE: CASE EVENT DATE: 20180109
